FAERS Safety Report 4433114-0 (Version None)
Quarter: 2004Q3

REPORT INFORMATION
  Report Type: 
  Country: None (occurrence: None)
  Receive Date: 20040823
  Receipt Date: 20040816
  Transmission Date: 20050211
  Serious: Yes (Hospitalization, Other)
  Sender: FDA-Public Use
  Company Number: KII-2004-0013043

PATIENT
  Age: 82 Year
  Sex: Male

DRUGS (1)
  1. MORPHINE SULFATE [Suspect]
     Dosage: SEE TEXT, ORAL
     Route: 048

REACTIONS (5)
  - ATRIAL FIBRILLATION [None]
  - COMA [None]
  - HEART RATE INCREASED [None]
  - MEDICATION ERROR [None]
  - SOMNOLENCE [None]
